FAERS Safety Report 9778411 (Version 2)
Quarter: 2014Q1

REPORT INFORMATION
  Report Type: Spontaneous
  Country: US (occurrence: US)
  Receive Date: 20131223
  Receipt Date: 20140304
  Transmission Date: 20141002
  Serious: Yes (Hospitalization, Other)
  Sender: FDA-Public Use
  Company Number: US-BAYER-2013-154550

PATIENT
  Age: 31 Year
  Sex: Female

DRUGS (23)
  1. MIRENA [Suspect]
     Indication: CONTRACEPTION
     Dosage: 20 MCG/24HR, CONT
     Route: 015
     Dates: start: 20111121, end: 20111221
  2. NUBAIN [Concomitant]
     Dosage: 5 MG, UNK
     Route: 042
     Dates: start: 20111101
  3. NICOTINE [Concomitant]
     Dosage: UNK
     Dates: start: 20111101
  4. MOTRIN [Concomitant]
     Dosage: 600 MG, UNK
  5. COLACE [Concomitant]
     Dosage: 100 MG, UNK
  6. PROMETHAZINE [Concomitant]
     Indication: NAUSEA
     Dosage: 121.5 MG, UNK
     Route: 048
  7. PRENATAL VITAMINS [Concomitant]
     Route: 048
  8. FLUZONE [Concomitant]
     Dosage: UNK
     Route: 030
     Dates: start: 20111118
  9. TERAZOL 7 [Concomitant]
     Dosage: 0.4 %, UNK
     Route: 067
  10. VITAMIN B 6 [Concomitant]
     Dosage: 50 MG, UNK
     Route: 048
  11. ZOFRAN [Concomitant]
     Indication: NAUSEA
     Dosage: 4 MG, UNK
     Route: 048
  12. PEPCID [Concomitant]
     Dosage: 20 MG, UNK
     Route: 048
  13. OMEPRAZOLE [Concomitant]
     Dosage: 20 MG, UNK
     Route: 048
  14. ALBUTEROL [Concomitant]
     Indication: DYSPNOEA
     Dosage: 2 PUFFS
     Route: 045
  15. PROAIR HFA [Concomitant]
     Indication: ASTHMA
  16. NEXIUM [Concomitant]
     Dosage: 40 MG, UNK
     Route: 048
  17. LASIX [Concomitant]
     Dosage: 40 MG, UNK
     Route: 048
  18. COREG [Concomitant]
     Dosage: 3.125 MG, UNK
     Route: 048
  19. LISINOPRIL [Concomitant]
     Dosage: 10 MG, UNK
     Route: 048
  20. ALDACTONE A [Concomitant]
     Dosage: 25 MG, UNK
     Route: 048
  21. IRON [Concomitant]
     Dosage: 325 MG, UNK
     Route: 048
  22. ULTRAM [Concomitant]
     Indication: PAIN
     Dosage: 50 MG, UNK
  23. LOVENOX [Concomitant]
     Dosage: 40 MG, UNK
     Route: 058

REACTIONS (15)
  - Uterine perforation [None]
  - Abdominal pain [None]
  - Abdominal pain lower [None]
  - Device dislocation [None]
  - Pelvic pain [None]
  - Injury [None]
  - Emotional distress [None]
  - Genital haemorrhage [None]
  - Internal injury [None]
  - Medical device discomfort [None]
  - Depression [None]
  - Anxiety [None]
  - Depressed mood [None]
  - Fear [None]
  - Device misuse [None]
